FAERS Safety Report 20391712 (Version 1)
Quarter: 2022Q1

REPORT INFORMATION
  Report Type: Other
  Country: ES (occurrence: None)
  Receive Date: 20220128
  Receipt Date: 20220128
  Transmission Date: 20220423
  Serious: Yes (Death, Other)
  Sender: FDA-Public Use
  Company Number: ES-ROCHE-3004025

PATIENT

DRUGS (3)
  1. OBINUTUZUMAB [Suspect]
     Active Substance: OBINUTUZUMAB
     Indication: Chronic lymphocytic leukaemia
     Dosage: 900 MG ON DAY 2, AND 1000 MG ON DAYS 8 AND 15 OF CYCLE 1, FOLLOWED BY 1000 MG ON DAY 1 OF EACH SUBSE
     Route: 042
  2. IBRUTINIB [Suspect]
     Active Substance: IBRUTINIB
     Indication: Chronic lymphocytic leukaemia
     Route: 048
  3. CHLORAMBUCIL [Suspect]
     Active Substance: CHLORAMBUCIL
     Indication: Chronic lymphocytic leukaemia
     Dosage: ON DAYS 1 AND 15 OF EACH 28-DAY CYCLE FOR SIX?CYCLES
     Route: 048

REACTIONS (21)
  - Pneumonia [Fatal]
  - Neutropenia [Unknown]
  - Thrombocytopenia [Unknown]
  - Diarrhoea [Unknown]
  - Cough [Unknown]
  - Infusion related reaction [Unknown]
  - Arthralgia [Unknown]
  - Pyrexia [Unknown]
  - Fatigue [Unknown]
  - Hypertension [Unknown]
  - Anaemia [Unknown]
  - Constipation [Unknown]
  - Back pain [Unknown]
  - Upper respiratory tract infection [Unknown]
  - Rash maculo-papular [Unknown]
  - Atrial fibrillation [Unknown]
  - Hyperuricaemia [Unknown]
  - Urinary tract infection [Unknown]
  - Dyspnoea [Unknown]
  - Pain in extremity [Unknown]
  - Cataract [Unknown]
